FAERS Safety Report 6237209-0 (Version None)
Quarter: 2009Q2

REPORT INFORMATION
  Report Type: 
  Country: None (occurrence: None)
  Receive Date: 20090619
  Receipt Date: 20090608
  Transmission Date: 20091009
  Serious: Yes (Hospitalization, Other)
  Sender: FDA-Public Use
  Company Number: US-PFIZER INC-2009224896

PATIENT
  Age: 30 Year
  Sex: Female

DRUGS (7)
  1. PREGABALIN [Suspect]
     Indication: NEURALGIA
     Dosage: UNK MG, UNK
  2. FENTANYL [Concomitant]
  3. MIDODRINE [Concomitant]
     Dosage: UNK
  4. SEVELAMER HYDROCHLORIDE [Concomitant]
     Dosage: 600 MG, 3X/DAY
  5. PANTOPRAZOLE [Concomitant]
     Dosage: UNK
  6. SODIUM BICARBONATE [Concomitant]
     Dosage: 650 MG, 3X/DAY
  7. LEVETIRACETAM [Concomitant]
     Dosage: 250 MG, 2X/DAY

REACTIONS (5)
  - DRUG TOXICITY [None]
  - HYPOTENSION [None]
  - MYOCLONUS [None]
  - NEURALGIA [None]
  - PYREXIA [None]
